FAERS Safety Report 4463002-5 (Version None)
Quarter: 2004Q3

REPORT INFORMATION
  Report Type: 
  Country: None (occurrence: None)
  Receive Date: 20040928
  Receipt Date: 20040917
  Transmission Date: 20050211
  Serious: No
  Sender: FDA-Public Use
  Company Number: 2004SE05193

PATIENT
  Age: 36 Year
  Sex: Female
  Weight: 74 kg

DRUGS (1)
  1. SEROQUEL [Suspect]
     Dosage: 400 MG DIALY

REACTIONS (2)
  - ANXIETY [None]
  - NEUROLEPTIC MALIGNANT SYNDROME [None]
